FAERS Safety Report 4462827-X (Version None)
Quarter: 2004Q3

REPORT INFORMATION
  Report Type: 
  Country: None (occurrence: None)
  Receive Date: 20040927
  Receipt Date: 20040917
  Transmission Date: 20050211
  Serious: Yes (Hospitalization)
  Sender: FDA-Public Use
  Company Number: 230295K04USA

PATIENT
  Age: 44 Year
  Sex: Female

DRUGS (2)
  1. REBIF [Suspect]
     Indication: MULTIPLE SCLEROSIS
     Dates: start: 20040322
  2. NOVANTRONE [Suspect]
     Indication: MULTIPLE SCLEROSIS
     Dates: start: 20040331, end: 20040331

REACTIONS (4)
  - DRUG INTOLERANCE [None]
  - HAEMOGLOBIN DECREASED [None]
  - LEUKOPENIA [None]
  - NOSOCOMIAL INFECTION [None]
